FAERS Safety Report 4864937-1 (Version None)
Quarter: 2005Q4

REPORT INFORMATION
  Report Type: 
  Country: None (occurrence: None)
  Receive Date: 20051201
  Receipt Date: 20050718
  Transmission Date: 20060501
  Serious: No
  Sender: FDA-Public Use
  Company Number: 2005PV000434

PATIENT
  Age: 73 Year
  Sex: Male

DRUGS (7)
  1. BYETTA [Suspect]
     Indication: DIABETES MELLITUS NON-INSULIN-DEPENDENT
     Dosage: 5 MCG;BID;SC
     Route: 058
     Dates: start: 20050618
  2. GLUCOPHAGE XR [Concomitant]
  3. AMARYL [Concomitant]
  4. ACTOS [Concomitant]
  5. TOPROL [Concomitant]
  6. AVALIDE [Concomitant]
  7. COUMADIN [Concomitant]

REACTIONS (6)
  - BLOOD GLUCOSE DECREASED [None]
  - DIZZINESS [None]
  - FATIGUE [None]
  - MALAISE [None]
  - NAUSEA [None]
  - WEIGHT INCREASED [None]
